FAERS Safety Report 4804429-9 (Version None)
Quarter: 2005Q4

REPORT INFORMATION
  Report Type: 
  Country: None (occurrence: None)
  Receive Date: 20051020
  Receipt Date: 20050516
  Transmission Date: 20060501
  Serious: Yes (Other)
  Sender: FDA-Public Use
  Company Number: FR-GLAXOSMITHKLINE-B0381083A

PATIENT
  Age: 33 Year
  Sex: Male

DRUGS (1)
  1. IMIJECT [Suspect]
     Dosage: 1INJ PER DAY
     Route: 058

REACTIONS (1)
  - DRUG ABUSER [None]
